FAERS Safety Report 7092792-0 (Version None)
Quarter: 2010Q4

REPORT INFORMATION
  Report Type: 
  Country: None (occurrence: None)
  Receive Date: 20101110
  Receipt Date: 20101101
  Transmission Date: 20110411
  Serious: No
  Sender: FDA-Public Use
  Company Number: US-PFIZER INC-2010139084

PATIENT
  Sex: Female
  Weight: 63.492 kg

DRUGS (11)
  1. ZITHROMAX [Suspect]
     Indication: LARYNGITIS
     Dosage: 250 MG, DAILY
     Route: 048
     Dates: start: 20101029
  2. ZITHROMAX [Suspect]
     Indication: OROPHARYNGEAL PAIN
  3. DILTIAZEM [Concomitant]
     Dosage: 240 MG, UNK
  4. OMEPRAZOLE [Concomitant]
     Dosage: UNK
  5. OXYCONTIN [Concomitant]
     Dosage: 20 MG, 2X/DAY
  6. GABAPENTIN [Concomitant]
     Dosage: 400 MG, 2X/DAY
  7. ENALAPRIL [Concomitant]
     Dosage: 5 MG,DAILY
  8. SIMVASTATIN [Concomitant]
     Dosage: 20 MG, DAILY
  9. TRAZODONE [Concomitant]
     Dosage: 50 MG, DAILY
  10. SYNTHROID [Concomitant]
     Dosage: 50 UG, UNK
  11. DIAZEPAM [Concomitant]
     Dosage: 5 MG, AS NEEDED

REACTIONS (1)
  - DIARRHOEA [None]
